FAERS Safety Report 5138134-9 (Version None)
Quarter: 2006Q4

REPORT INFORMATION
  Report Type: 
  Country: None (occurrence: None)
  Receive Date: 20061030
  Receipt Date: 20060419
  Transmission Date: 20070319
  Serious: Yes (Other)
  Sender: FDA-Public Use
  Company Number: US-GLAXOSMITHKLINE-A0602501A

PATIENT
  Age: 41 Year
  Sex: Female

DRUGS (2)
  1. ADVAIR HFA [Suspect]
     Indication: ASTHMA
     Route: 055
     Dates: end: 20060401
  2. ALBUTEROL [Concomitant]

REACTIONS (3)
  - ASTHMA [None]
  - DYSPNOEA [None]
  - INSOMNIA [None]
